FAERS Safety Report 21977870 (Version 6)
Quarter: 2023Q1

REPORT INFORMATION
  Report Type: Report from Study
  Country: US (occurrence: None)
  Receive Date: 20230210
  Receipt Date: 20230321
  Transmission Date: 20230417
  Serious: Yes (Hospitalization)
  Sender: FDA-Public Use
  Company Number: US-Eisai Medical Research-EC-2023-133624

PATIENT
  Age: 66 Year
  Sex: Female
  Weight: 72.57 kg

DRUGS (19)
  1. LENVATINIB [Suspect]
     Active Substance: LENVATINIB
     Indication: Clear cell renal cell carcinoma
     Dosage: FLUCTUATED DOSAGE, STARTING DOSE 20 MG
     Route: 048
     Dates: start: 20210830, end: 20211102
  2. LENVATINIB [Suspect]
     Active Substance: LENVATINIB
     Route: 048
     Dates: start: 20211103, end: 20211208
  3. PEMBROLIZUMAB [Suspect]
     Active Substance: PEMBROLIZUMAB
     Indication: Clear cell renal cell carcinoma
     Route: 041
     Dates: start: 20210830, end: 20211013
  4. PEMBROLIZUMAB [Suspect]
     Active Substance: PEMBROLIZUMAB
     Route: 041
     Dates: start: 20211124
  5. BELZUTIFAN [Suspect]
     Active Substance: BELZUTIFAN
     Indication: Clear cell renal cell carcinoma
     Dosage: FLUCTUATED DOSAGE, STARTING DOSE 120 MG
     Route: 048
     Dates: start: 20210830, end: 20211101
  6. EFFEXOR [Concomitant]
     Active Substance: VENLAFAXINE HYDROCHLORIDE
     Dates: start: 201101
  7. CLARITIN [Concomitant]
     Active Substance: LORATADINE
     Dates: start: 202001
  8. SUCRALFATE [Concomitant]
     Active Substance: SUCRALFATE
     Dates: start: 202003
  9. PANTOPRAZOLE [Concomitant]
     Active Substance: PANTOPRAZOLE
     Dates: start: 202003
  10. METOPROLOL SUCCINATE [Concomitant]
     Active Substance: METOPROLOL SUCCINATE
     Dates: start: 202012, end: 20211122
  11. NITROGLYCERIN [Concomitant]
     Active Substance: NITROGLYCERIN
     Dates: start: 202012
  12. ASPIRIN [Concomitant]
     Active Substance: ASPIRIN
     Dates: start: 202012
  13. REPATHA [Concomitant]
     Active Substance: EVOLOCUMAB
     Dates: start: 202012, end: 20230215
  14. ROBAXIN [Concomitant]
     Active Substance: METHOCARBAMOL
     Dates: start: 202012
  15. CLOPIDOGREL [Concomitant]
     Active Substance: CLOPIDOGREL BISULFATE
     Dates: start: 202012, end: 20230201
  16. RANOLAZINE HYDROCHLORIDE [Concomitant]
     Active Substance: RANOLAZINE HYDROCHLORIDE
     Dates: start: 202012
  17. ALDACTONE [Concomitant]
     Active Substance: SPIRONOLACTONE
     Dates: start: 20210412, end: 20211013
  18. PREDNISONE [Concomitant]
     Active Substance: PREDNISONE
     Dates: start: 20210930, end: 20211215
  19. FUROSEMIDE [Concomitant]
     Active Substance: FUROSEMIDE
     Dates: start: 20211014

REACTIONS (1)
  - Headache [Recovered/Resolved]

NARRATIVE: CASE EVENT DATE: 20211025
